FAERS Safety Report 5728346-5 (Version None)
Quarter: 2008Q2

REPORT INFORMATION
  Report Type: 
  Country: None (occurrence: None)
  Receive Date: 20080502
  Receipt Date: 20080502
  Transmission Date: 20081010
  Serious: Yes (Hospitalization)
  Sender: FDA-Public Use
  Company Number: None

PATIENT
  Age: 36 Year
  Sex: Female
  Weight: 58.9676 kg

DRUGS (1)
  1. TAMIFLU [Suspect]
     Indication: INFLUENZA
     Dosage: TAKE ONE CAPSULE TWICE DAILY -5DAYS PO
     Route: 048
     Dates: start: 20061120, end: 20061123

REACTIONS (8)
  - AMNESIA [None]
  - DELUSION [None]
  - DISORIENTATION [None]
  - DRUG HYPERSENSITIVITY [None]
  - HYPERACUSIS [None]
  - INSOMNIA [None]
  - NIGHTMARE [None]
  - THINKING ABNORMAL [None]
